FAERS Safety Report 7248951-7 (Version None)
Quarter: 2011Q1

REPORT INFORMATION
  Report Type: 
  Country: None (occurrence: None)
  Receive Date: 20110128
  Receipt Date: 20101004
  Transmission Date: 20110831
  Serious: Yes (Hospitalization, Other)
  Sender: FDA-Public Use
  Company Number: US-BAYER-201015569NA

PATIENT
  Sex: Female
  Weight: 65 kg

DRUGS (14)
  1. VALTREX [Concomitant]
     Indication: GENITAL HERPES
     Route: 048
     Dates: start: 20060101
  2. XANAX [Concomitant]
     Indication: ANXIETY
     Route: 048
     Dates: start: 20070301
  3. CORTISPORIN [Concomitant]
     Indication: OTITIS EXTERNA
  4. YAZ [Suspect]
     Indication: MENSTRUATION IRREGULAR
     Route: 048
     Dates: start: 20060501, end: 20070214
  5. WELLBUTRIN XL [Concomitant]
     Indication: DEPRESSION
     Route: 048
     Dates: start: 20060101, end: 20080101
  6. ZOLOFT [Concomitant]
     Indication: DEPRESSION
     Route: 065
     Dates: start: 20080101, end: 20090101
  7. WELLBUTRIN XL [Concomitant]
     Indication: PREMENSTRUAL SYNDROME
  8. AMITRIPTYLINE HCL [Concomitant]
     Indication: DEPRESSION
     Route: 065
     Dates: start: 20010101, end: 20010101
  9. CELEXA [Concomitant]
     Indication: PREMENSTRUAL SYNDROME
  10. CELEXA [Concomitant]
     Indication: DEPRESSION
  11. OMNICEF [Concomitant]
     Indication: ACNE
  12. LEXAPRO [Concomitant]
     Indication: DEPRESSION
     Route: 065
     Dates: start: 20090101
  13. PROZAC [Concomitant]
     Indication: DEPRESSION
     Route: 065
     Dates: start: 20080101
  14. OMNICEF [Concomitant]
     Indication: FUNGAL SKIN INFECTION
     Route: 065

REACTIONS (4)
  - MYOCARDIAL ISCHAEMIA [None]
  - CHEST PAIN [None]
  - ACUTE MYOCARDIAL INFARCTION [None]
  - HOT FLUSH [None]
